FAERS Safety Report 9696266 (Version 2)
Quarter: 2013Q4

REPORT INFORMATION
  Report Type: Spontaneous
  Country: FR (occurrence: FR)
  Receive Date: 20131119
  Receipt Date: 20131204
  Transmission Date: 20140711
  Serious: Yes (Life-Threatening, Hospitalization)
  Sender: FDA-Public Use
  Company Number: FR-PFIZER INC-2013326219

PATIENT
  Age: 13 Year
  Sex: Female

DRUGS (3)
  1. ADVIL [Suspect]
     Indication: SINUSITIS
     Dosage: UNK
     Dates: start: 20120901, end: 20120911
  2. AMOXICILLIN [Concomitant]
     Indication: SINUSITIS
     Dosage: 50 MG/KG, DAILY
     Route: 048
     Dates: start: 20120905, end: 20120908
  3. PYOSTACINE [Concomitant]
     Indication: SINUSITIS
     Dosage: 50 MG/KG, DAILY
     Route: 048
     Dates: start: 20120908, end: 20120911

REACTIONS (8)
  - Sinusitis [Recovered/Resolved]
  - Headache [Recovered/Resolved]
  - Pyrexia [Recovered/Resolved]
  - Photophobia [Recovered/Resolved]
  - Motor dysfunction [Recovered/Resolved]
  - Brain empyema [Recovered/Resolved]
  - Brain empyema [Recovered/Resolved]
  - Off label use [Unknown]
